FAERS Safety Report 13870838 (Version 1)
Quarter: 2017Q3

REPORT INFORMATION
  Report Type: Spontaneous
  Country: US (occurrence: US)
  Receive Date: 20170816
  Receipt Date: 20170816
  Transmission Date: 20171127
  Serious: Yes (Hospitalization, Other)
  Sender: FDA-Public Use
  Company Number: PHHY2017US117559

PATIENT
  Age: 74 Year
  Sex: Female

DRUGS (4)
  1. VANCOMYCIN [Suspect]
     Active Substance: VANCOMYCIN
     Indication: PRODUCT USED FOR UNKNOWN INDICATION
     Route: 065
  2. LIDOCAINE. [Concomitant]
     Active Substance: LIDOCAINE
     Indication: PRODUCT USED FOR UNKNOWN INDICATION
     Route: 065
  3. AMVISC PLUS [Concomitant]
     Indication: PRODUCT USED FOR UNKNOWN INDICATION
     Route: 065
  4. EPINEPHRINE. [Concomitant]
     Active Substance: EPINEPHRINE
     Indication: PRODUCT USED FOR UNKNOWN INDICATION
     Route: 065

REACTIONS (12)
  - Retinal perivascular sheathing [Recovered/Resolved]
  - Maculopathy [Recovered/Resolved]
  - Vitreous haemorrhage [Recovered/Resolved]
  - Macular oedema [Recovered/Resolved]
  - Retinal vascular occlusion [Recovered/Resolved]
  - Retinal vein occlusion [Recovered/Resolved]
  - Visual acuity reduced [Recovered/Resolved]
  - Blindness [Recovered/Resolved]
  - Retinal ischaemia [Recovered/Resolved]
  - Visual impairment [Recovered/Resolved]
  - Vasculitis [Recovered/Resolved]
  - Retinal haemorrhage [Recovered/Resolved]
